FAERS Safety Report 11557843 (Version 1)
Quarter: 2015Q3

REPORT INFORMATION
  Report Type: Spontaneous
  Country: CH (occurrence: None)
  Receive Date: 20150924
  Receipt Date: 20150924
  Transmission Date: 20151125
  Serious: Yes (Other)
  Sender: FDA-Public Use
  Company Number: 2015HINLIT0785

PATIENT
  Age: 66 Year
  Sex: Male

DRUGS (1)
  1. SIMVASTATIN (SIMVASTATIN) TABLET, 20MG [Suspect]
     Active Substance: SIMVASTATIN
     Indication: CHRONIC OBSTRUCTIVE PULMONARY DISEASE

REACTIONS (3)
  - Rhabdomyolysis [None]
  - Immune-mediated necrotising myopathy [None]
  - Quadriparesis [None]
